FAERS Safety Report 12633774 (Version 4)
Quarter: 2017Q1

REPORT INFORMATION
  Report Type: Spontaneous
  Country: US (occurrence: US)
  Receive Date: 20160809
  Receipt Date: 20170321
  Transmission Date: 20170428
  Serious: Yes (Other)
  Sender: FDA-Public Use
  Company Number: US-PFIZER INC-2016375227

PATIENT
  Age: 48 Year
  Sex: Female
  Weight: 62 kg

DRUGS (2)
  1. ARIMIDEX [Concomitant]
     Active Substance: ANASTROZOLE
     Dosage: 1 MG, UNK
     Dates: start: 2008
  2. IBUPROFEN. [Suspect]
     Active Substance: IBUPROFEN
     Indication: ARTHRALGIA
     Dosage: 100 MG, 3X/DAY
     Dates: start: 2009, end: 2012

REACTIONS (2)
  - Gastrointestinal oedema [Recovered/Resolved]
  - Intestinal obstruction [Recovered/Resolved]

NARRATIVE: CASE EVENT DATE: 2012
